FAERS Safety Report 7177300-8 (Version None)
Quarter: 2010Q4

REPORT INFORMATION
  Report Type: 
  Country: None (occurrence: None)
  Receive Date: 20101216
  Receipt Date: 20101216
  Transmission Date: 20110411
  Serious: Yes (Other)
  Sender: FDA-Public Use
  Company Number: None

PATIENT
  Age: 62 Year
  Sex: Male
  Weight: 83.9154 kg

DRUGS (1)
  1. CLINDAMYCIN/CLEOCIN 150 MG CAPSULES TEVA USA [Suspect]
     Indication: TOOTH INFECTION
     Dosage: 1 CAPSULE 4 TIMES A DAY PO
     Route: 048
     Dates: start: 20100923, end: 20101030

REACTIONS (2)
  - ABNORMAL LOSS OF WEIGHT [None]
  - CLOSTRIDIUM DIFFICILE COLITIS [None]
